FAERS Safety Report 7122296-8 (Version None)
Quarter: 2010Q4

REPORT INFORMATION
  Report Type: 
  Country: None (occurrence: None)
  Receive Date: 20101124
  Receipt Date: 20101118
  Transmission Date: 20110411
  Serious: Yes (Other)
  Sender: FDA-Public Use
  Company Number: US-ABBOTT-10P-163-0686496-00

PATIENT
  Sex: Male
  Weight: 138.47 kg

DRUGS (20)
  1. HUMIRA [Suspect]
     Indication: RHEUMATOID ARTHRITIS
     Dates: start: 20100901, end: 20101001
  2. PREDNISONE [Concomitant]
     Indication: RHEUMATOID ARTHRITIS
  3. POTASSIUM CHLORIDE [Concomitant]
     Indication: ELECTROLYTE SUBSTITUTION THERAPY
  4. EFFEXOR [Concomitant]
     Indication: DEPRESSION
  5. ATENOLOL [Concomitant]
     Indication: HYPERTENSION
  6. OMEPRAZOLE [Concomitant]
     Indication: GASTRIC DISORDER
  7. OMEPRAZOLE [Concomitant]
     Indication: PROPHYLAXIS
  8. FLOMAX [Concomitant]
     Indication: URINARY TRACT DISORDER
  9. LEVOTHYROXINE SODIUM [Concomitant]
     Indication: HYPOTHYROIDISM
  10. DIAZEPAM [Concomitant]
     Indication: ANXIETY
  11. SPIRIVA [Concomitant]
     Indication: RESPIRATORY DISORDER
  12. ADVAIR [Concomitant]
     Indication: RESPIRATORY DISORDER
  13. ALPHAGAN [Concomitant]
     Indication: GLAUCOMA
  14. FLONASE [Concomitant]
     Indication: HYPERSENSITIVITY
  15. HYDROCODONE [Concomitant]
     Indication: PAIN
  16. METFORMIN [Concomitant]
     Indication: DIABETES MELLITUS
  17. GLYBURIDE [Concomitant]
     Indication: DIABETES MELLITUS
  18. BUDEPRION [Concomitant]
     Indication: DEPRESSION
  19. AMITRIPTYLINE HCL [Concomitant]
     Indication: ANXIETY
  20. VENTOLIN [Concomitant]
     Indication: RESPIRATORY DISORDER

REACTIONS (6)
  - ARTHRALGIA [None]
  - CELLULITIS [None]
  - JOINT SWELLING [None]
  - MALAISE [None]
  - PYREXIA [None]
  - THROMBOSIS [None]
